FAERS Safety Report 20878877 (Version 1)
Quarter: 2022Q2

REPORT INFORMATION
  Report Type: Spontaneous
  Country: US (occurrence: US)
  Receive Date: 20220526
  Receipt Date: 20220526
  Transmission Date: 20220720
  Serious: Yes (Other)
  Sender: FDA-Public Use
  Company Number: US-TEVA-2022-US-2034072

PATIENT
  Age: 69 Year
  Sex: Female

DRUGS (1)
  1. AUSTEDO [Suspect]
     Active Substance: DEUTETRABENAZINE
     Indication: Tardive dyskinesia
     Dosage: 12 MILLIGRAM DAILY;
     Dates: start: 20220413, end: 20220420

REACTIONS (4)
  - Throat tightness [Unknown]
  - Pruritus [Unknown]
  - Insomnia [Unknown]
  - Chest pain [Unknown]

NARRATIVE: CASE EVENT DATE: 20220401
